FAERS Safety Report 8856790 (Version 1)
Quarter: 2012Q4

REPORT INFORMATION
  Report Type: 
  Country: US (occurrence: US)
  Receive Date: 20121023
  Receipt Date: 20121023
  Transmission Date: 20130627
  Serious: No
  Sender: FDA-Public Use
  Company Number: US-AMGEN-USASP2012056722

PATIENT
  Age: 76 Year
  Sex: Male

DRUGS (2)
  1. ENBREL [Suspect]
     Indication: RHEUMATOID ARTHRITIS
     Dosage: 50 mg, weekly
     Route: 058
     Dates: start: 201203
  2. PREDNISONE [Concomitant]
     Dosage: 5 mg, UNK

REACTIONS (3)
  - Discomfort [Unknown]
  - Arthralgia [Unknown]
  - Oedema peripheral [Unknown]
